FAERS Safety Report 6817099-5 (Version None)
Quarter: 2010Q2

REPORT INFORMATION
  Report Type: 
  Country: None (occurrence: None)
  Receive Date: 20100630
  Receipt Date: 20100618
  Transmission Date: 20101027
  Serious: Yes (Hospitalization)
  Sender: FDA-Public Use
  Company Number: 010051

PATIENT
  Age: 89 Year
  Sex: Male

DRUGS (4)
  1. PLETAL [Suspect]
     Indication: INTERMITTENT CLAUDICATION
     Dosage: 100 MG, BID, ORAL
     Route: 048
     Dates: start: 20090617, end: 20090914
  2. ACETYLSALICYLIC ACID SRT [Concomitant]
  3. BISOPROLOL [Concomitant]
  4. SIMVASTATIN [Concomitant]

REACTIONS (1)
  - CARDIAC FAILURE ACUTE [None]
